FAERS Safety Report 8947707 (Version 1)
Quarter: 2012Q4

REPORT INFORMATION
  Report Type: 
  Country: DE (occurrence: DE)
  Receive Date: 20121205
  Receipt Date: 20121205
  Transmission Date: 20130627
  Serious: Yes (Other)
  Sender: FDA-Public Use
  Company Number: GXKR2012DE003744

PATIENT
  Age: 42 Year
  Sex: Male
  Weight: 73 kg

DRUGS (1)
  1. OMEPRAZOLE [Suspect]
     Indication: GASTRIC DISORDER
     Dosage: 20 mg, QD
     Route: 048
     Dates: start: 20121028, end: 20121119

REACTIONS (2)
  - Circulatory collapse [Recovered/Resolved]
  - Dizziness [Recovered/Resolved]
